FAERS Safety Report 7834060-2 (Version None)
Quarter: 2011Q4

REPORT INFORMATION
  Report Type: 
  Country: None (occurrence: None)
  Receive Date: 20111024
  Receipt Date: 20111024
  Transmission Date: 20120403
  Serious: Yes (Other)
  Sender: FDA-Public Use
  Company Number: None

PATIENT
  Age: 57 Year
  Sex: Female
  Weight: 52.163 kg

DRUGS (1)
  1. CLOTRIMAZOLE [Suspect]
     Indication: TINEA INFECTION
     Dosage: APPLY THINLY TO SKIN
     Route: 061
     Dates: start: 20111005, end: 20111008

REACTIONS (9)
  - SKIN EXFOLIATION [None]
  - DRY SKIN [None]
  - APPLICATION SITE DRYNESS [None]
  - HYPERSENSITIVITY [None]
  - APPLICATION SITE VESICLES [None]
  - CHEMICAL BURN OF SKIN [None]
  - PAIN [None]
  - ECZEMA [None]
  - EXTERNAL EAR INFLAMMATION [None]
